FAERS Safety Report 7772049-2 (Version None)
Quarter: 2011Q3

REPORT INFORMATION
  Report Type: 
  Country: None (occurrence: None)
  Receive Date: 20110922
  Receipt Date: 20110223
  Transmission Date: 20111222
  Serious: Yes (Hospitalization)
  Sender: FDA-Public Use
  Company Number: US-ASTRAZENECA-2007UW02392

PATIENT
  Sex: Female
  Weight: 79.4 kg

DRUGS (36)
  1. MELLARIL [Concomitant]
     Dates: start: 19970101, end: 20010101
  2. PRINIVIL [Concomitant]
     Dates: start: 20040115
  3. TRAZODONE HYDROCHLORIDE [Concomitant]
     Dates: start: 19970804
  4. SEROQUEL [Suspect]
     Indication: SCHIZOAFFECTIVE DISORDER
     Route: 048
     Dates: start: 20001113, end: 20001201
  5. SEROQUEL [Suspect]
     Route: 048
     Dates: start: 20040102
  6. SEROQUEL [Suspect]
     Dosage: 25 MG - 100 MG
     Route: 048
     Dates: start: 20031101
  7. ABILIFY [Concomitant]
     Dates: start: 20040102
  8. PRAVACHOL [Concomitant]
     Route: 048
     Dates: start: 20041021
  9. AVAPRO [Concomitant]
     Dates: start: 20071017
  10. TYLENOL-500 [Concomitant]
     Dates: start: 20001215
  11. SEROQUEL [Suspect]
     Route: 048
     Dates: start: 20031128, end: 20031201
  12. KLOR-CON [Concomitant]
     Dates: start: 20010412
  13. METOPROLOL [Concomitant]
     Dates: start: 20031113
  14. TRAZODONE HYDROCHLORIDE [Concomitant]
     Dates: start: 19980609
  15. FUROSEMIDE [Concomitant]
     Route: 048
     Dates: start: 20031015
  16. PEPCID [Concomitant]
     Dates: start: 20040115
  17. SPIRONOLACTONE [Concomitant]
     Dates: start: 20020917
  18. SEROQUEL [Suspect]
     Route: 048
     Dates: start: 20011114
  19. ASPIRIN [Concomitant]
     Dates: start: 19960217
  20. COMBIVENT [Concomitant]
     Dosage: TWO PUFFS
     Dates: start: 20001101
  21. LANOXIN [Concomitant]
     Dates: start: 19990722
  22. DIOVAN [Concomitant]
     Route: 048
     Dates: start: 20010412
  23. FUROSEMIDE [Concomitant]
     Route: 048
     Dates: start: 19981110
  24. LANOXIN [Concomitant]
     Dates: start: 19980217
  25. MONOPRIL [Concomitant]
     Dates: start: 19980217
  26. SEROQUEL [Suspect]
     Route: 048
     Dates: start: 20050116
  27. ZOCOR [Concomitant]
  28. PLAVIX [Concomitant]
     Route: 048
  29. LIPITOR [Concomitant]
     Dosage: 100 MG - 400 MG
     Dates: start: 20060929
  30. NORVASC [Concomitant]
     Dates: start: 20001215
  31. AMBIEN [Concomitant]
     Indication: SLEEP DISORDER
     Dates: start: 20000818
  32. AMITRIPTYLINE HCL [Concomitant]
     Dates: start: 19990815
  33. CELEXA [Concomitant]
     Dosage: 20 MG - 40 MG
     Dates: start: 20020212
  34. LIPITOR [Concomitant]
     Dates: start: 19990722
  35. PRINIVIL [Concomitant]
     Dates: start: 20010705
  36. TYLENOL-500 [Concomitant]
     Dates: start: 20031127

REACTIONS (13)
  - URINARY TRACT INFECTION [None]
  - SINUSITIS [None]
  - ASTHMA [None]
  - HYPERLIPIDAEMIA [None]
  - OROPHARYNGEAL PAIN [None]
  - TYPE 1 DIABETES MELLITUS [None]
  - HAEMORRHOIDS [None]
  - DYSPNOEA [None]
  - ROAD TRAFFIC ACCIDENT [None]
  - HYPERTENSION [None]
  - CARDIAC FAILURE CONGESTIVE [None]
  - TYPE 2 DIABETES MELLITUS [None]
  - HYPERGLYCAEMIA [None]
